FAERS Safety Report 10462359 (Version 2)
Quarter: 2014Q4

REPORT INFORMATION
  Report Type: Spontaneous
  Country: US (occurrence: US)
  Receive Date: 20140918
  Receipt Date: 20141119
  Transmission Date: 20150528
  Serious: No
  Sender: FDA-Public Use
  Company Number: US-ROXANE LABORATORIES, INC.-2014-RO-01420RO

PATIENT
  Age: 54 Year
  Sex: Female

DRUGS (1)
  1. MEPERIDINE [Suspect]
     Active Substance: MEPERIDINE
     Indication: PAIN
     Route: 048

REACTIONS (2)
  - Product quality issue [Unknown]
  - Malaise [Unknown]
